FAERS Safety Report 10299360 (Version 1)
Quarter: 2014Q3

REPORT INFORMATION
  Report Type: Spontaneous
  Country: SE (occurrence: SE)
  Receive Date: 20140711
  Receipt Date: 20140711
  Transmission Date: 20150326
  Serious: Yes (Hospitalization)
  Sender: FDA-Public Use
  Company Number: SE-ASTRAZENECA-2014SE48823

PATIENT
  Age: 85 Year
  Sex: Male

DRUGS (16)
  1. IMDUR [Concomitant]
     Active Substance: ISOSORBIDE MONONITRATE
     Route: 048
  2. METOPROLOL [Concomitant]
     Active Substance: METOPROLOL
  3. PERFALGAN [Concomitant]
     Active Substance: ACETAMINOPHEN
     Dosage: 10 MG/ML, AS NECESSARY
  4. CEFOTAXIME [Concomitant]
     Active Substance: CEFOTAXIME\CEFOTAXIME SODIUM
  5. BRILIQUE [Suspect]
     Active Substance: TICAGRELOR
     Route: 048
     Dates: start: 20140527, end: 20140622
  6. ALFUZOSIN [Concomitant]
     Active Substance: ALFUZOSIN
  7. FINASTERIDE. [Concomitant]
     Active Substance: FINASTERIDE
  8. PIPERACILLIN [Concomitant]
     Active Substance: PIPERACILLIN
  9. LIPITOR [Suspect]
     Active Substance: ATORVASTATIN CALCIUM
     Route: 048
     Dates: start: 20140520, end: 20140622
  10. ALENAT [Concomitant]
     Active Substance: ALENDRONATE SODIUM
  11. OMEPRAZOLE. [Concomitant]
     Active Substance: OMEPRAZOLE
  12. WARAN [Concomitant]
     Active Substance: WARFARIN SODIUM
  13. PREDNISOLONE. [Concomitant]
     Active Substance: PREDNISOLONE
  14. GLYCERYL TRINITRATE [Concomitant]
     Active Substance: NITROGLYCERIN
     Route: 060
  15. PANODIL [Concomitant]
     Active Substance: ACETAMINOPHEN
     Dosage: AS NECESSARY
  16. FURIX [Concomitant]
     Active Substance: FUROSEMIDE

REACTIONS (1)
  - Hepatic function abnormal [Recovered/Resolved]

NARRATIVE: CASE EVENT DATE: 20140619
